FAERS Safety Report 6602078-3 (Version None)
Quarter: 2010Q1

REPORT INFORMATION
  Report Type: 
  Country: None (occurrence: None)
  Receive Date: 20100225
  Receipt Date: 20100212
  Transmission Date: 20100710
  Serious: Yes (Other)
  Sender: FDA-Public Use
  Company Number: PHHY2010AU04569

PATIENT
  Sex: Female

DRUGS (5)
  1. CLOZARIL [Suspect]
     Indication: SCHIZOPHRENIA
     Dosage: 400 MG, UNK
     Dates: start: 20000502
  2. CLOZARIL [Suspect]
     Dosage: UNK
  3. LITHIUM [Concomitant]
     Indication: DEPRESSION
     Dosage: 500 MG
     Route: 048
     Dates: start: 19940101
  4. PROZAC [Concomitant]
     Indication: DEPRESSION
     Dosage: 20 MG
  5. STELAZINE [Concomitant]
     Indication: SCHIZOPHRENIA
     Dosage: 8 MG
     Route: 048

REACTIONS (3)
  - BREAST CANCER METASTATIC [None]
  - LYMPHOPENIA [None]
  - WHITE BLOOD CELL COUNT DECREASED [None]
